FAERS Safety Report 9017630 (Version 1)
Quarter: 2013Q1

REPORT INFORMATION
  Report Type: Spontaneous
  Country: US (occurrence: US)
  Receive Date: 20130117
  Receipt Date: 20130117
  Transmission Date: 20140127
  Serious: Yes (Death, Hospitalization, Other)
  Sender: FDA-Public Use
  Company Number: US-OTSUKA-US-2013-10031

PATIENT
  Age: 85 Year
  Sex: Male

DRUGS (5)
  1. SAMSCA [Suspect]
     Indication: BLOOD SODIUM DECREASED
     Dosage: UNK MG MILLIGRAM(S), UNK
  2. SAMSCA [Suspect]
     Dosage: UNK MG MILLIGRAM(S), UNK
  3. AMOXICILLIN [Concomitant]
  4. LEVAQUIN [Concomitant]
     Indication: PNEUMONIA
  5. LASIX [Concomitant]
     Indication: PRODUCT USED FOR UNKNOWN INDICATION

REACTIONS (10)
  - Death [Fatal]
  - Pulmonary oedema [Unknown]
  - Chronic obstructive pulmonary disease [Unknown]
  - Pneumonia [Unknown]
  - Renal failure [Unknown]
  - Throat tightness [Unknown]
  - Dysphonia [Unknown]
  - Muscular weakness [Unknown]
  - Muscular weakness [Unknown]
  - Nervous system disorder [Unknown]
